FAERS Safety Report 9256821 (Version 1)
Quarter: 2013Q2

REPORT INFORMATION
  Report Type: Spontaneous
  Country: SZ (occurrence: None)
  Receive Date: 20130417
  Receipt Date: 20130417
  Transmission Date: 20140414
  Serious: Yes (Other)
  Sender: FDA-Public Use
  Company Number: 2013035280

PATIENT
  Age: 53 Year
  Sex: Male

DRUGS (13)
  1. PRIVIGEN (IMMUNE GLOBULIN INTRAVENOUS (HUMAN) 10% LIQUID) [Suspect]
     Indication: TRANSPLANT REJECTION
     Dosage: 30 G QD, MAX. INFUSION RATE: 1ML/KG/H
     Route: 042
     Dates: start: 20130304, end: 20130308
  2. METHYLPREDNISOLONE (METHYLPREDNISOLONE) [Concomitant]
  3. PROGRAF (TACROLIMUS) [Concomitant]
  4. CELICEPT (MYCOPHENOLATE MOFETIL) [Concomitant]
  5. PREDNISON (PREDNISONE) [Concomitant]
  6. RAPAMUNE (SIROLIMUS) [Concomitant]
  7. CONCOR   /00802602/ (BISOPROLOL FUMARATE) [Concomitant]
  8. ATACAND   /01349502/ (CANDESARTAN CILEXETIL) [Concomitant]
  9. METOLAZONE (METOLAZONE) [Concomitant]
  10. SORTIS   /01326101/ (ATORVASTATIN) [Concomitant]
  11. PANTOZOL (PANTOPRAZOLE SODIUM) [Concomitant]
  12. SULFAMETHOXAZOLE W/TRIMETHOPRIM (BACTRIM  /00086101/) [Concomitant]
  13. MARCOUMAR (PHENPROCOUMON) [Concomitant]

REACTIONS (3)
  - Haemolytic anaemia [None]
  - Haemoglobin decreased [None]
  - Dyspnoea [None]
